FAERS Safety Report 17153578 (Version 1)
Quarter: 2019Q4

REPORT INFORMATION
  Report Type: Spontaneous
  Country: US (occurrence: US)
  Receive Date: 20191213
  Receipt Date: 20191213
  Transmission Date: 20200122
  Serious: No
  Sender: FDA-Public Use
  Company Number: US-ENDO PHARMACEUTICALS INC-2019-103259

PATIENT
  Sex: Male
  Weight: 86.17 kg

DRUGS (5)
  1. TESTIM [Suspect]
     Active Substance: TESTOSTERONE
     Indication: BLOOD TESTOSTERONE DECREASED
     Dosage: UNK UNKNOWN, ONE TUBE DAILY
     Route: 061
     Dates: start: 1999
  2. ALLOPURINOL. [Concomitant]
     Active Substance: ALLOPURINOL
     Indication: BLOOD URIC ACID
  3. IRON [Concomitant]
     Active Substance: IRON
     Indication: BLOOD IRON DECREASED
  4. TESTIM [Suspect]
     Active Substance: TESTOSTERONE
     Dosage: UNK UNKNOWN, TWO TUBES DAILY
     Route: 061
     Dates: start: 2016
  5. TESTIM [Suspect]
     Active Substance: TESTOSTERONE
     Dosage: UNK UNKNOWN, ONE AND ONE HALF TUBES DAILY
     Route: 061
     Dates: start: 2018

REACTIONS (8)
  - Red blood cell count increased [Unknown]
  - Blood testosterone decreased [Unknown]
  - Libido decreased [Unknown]
  - Haemoglobin increased [Unknown]
  - Limb discomfort [Unknown]
  - Headache [Unknown]
  - Sluggishness [Unknown]
  - Blood iron abnormal [Unknown]

NARRATIVE: CASE EVENT DATE: 2014
